FAERS Safety Report 16764232 (Version 1)
Quarter: 2019Q3

REPORT INFORMATION
  Report Type: Report from Study
  Country: JP (occurrence: JP)
  Receive Date: 20190902
  Receipt Date: 20190902
  Transmission Date: 20191005
  Serious: Yes (Death, Other)
  Sender: FDA-Public Use
  Company Number: JP-UCBSA-2019036449

PATIENT
  Age: 81 Year
  Sex: Male
  Weight: 60 kg

DRUGS (5)
  1. LACOSAMIDE. [Suspect]
     Active Substance: LACOSAMIDE
     Dosage: 100 MILLIGRAM, 2X/DAY (BID)
     Route: 048
     Dates: start: 20180607, end: 20180615
  2. AMPICILLIN AND SULBACTAM [Concomitant]
     Active Substance: AMPICILLIN SODIUM\SULBACTAM SODIUM
     Indication: PNEUMONIA ASPIRATION
     Dosage: UNK
     Dates: start: 20180607
  3. LACOSAMIDE. [Suspect]
     Active Substance: LACOSAMIDE
     Indication: PARTIAL SEIZURES WITH SECONDARY GENERALISATION
     Dosage: 50 MILLIGRAM, 2X/DAY (BID)
     Route: 048
     Dates: start: 20180529, end: 20180606
  4. PERAMPANEL [Concomitant]
     Active Substance: PERAMPANEL
     Indication: PARTIAL SEIZURES WITH SECONDARY GENERALISATION
     Dosage: 2 MG DAILY
     Route: 048
     Dates: start: 20180608, end: 20180615
  5. E KEPPRA [Concomitant]
     Active Substance: LEVETIRACETAM
     Indication: PARTIAL SEIZURES WITH SECONDARY GENERALISATION
     Dosage: 1500 MG DAILY
     Dates: start: 20180523, end: 20180615

REACTIONS (4)
  - Status epilepticus [Fatal]
  - Altered state of consciousness [Fatal]
  - Lung abscess [Unknown]
  - Pneumonia aspiration [Unknown]

NARRATIVE: CASE EVENT DATE: 2018
